APPROVED DRUG PRODUCT: ULESFIA
Active Ingredient: BENZYL ALCOHOL
Strength: 5% **Federal Register determination that product was not discontinued or withdrawn for safety or effectiveness reasons**
Dosage Form/Route: LOTION;TOPICAL
Application: N022129 | Product #001
Applicant: SHIONOGI INC
Approved: Apr 9, 2009 | RLD: Yes | RS: No | Type: DISCN